FAERS Safety Report 13542977 (Version 7)
Quarter: 2018Q1

REPORT INFORMATION
  Report Type: Report from Study
  Country: IT (occurrence: IT)
  Receive Date: 20170513
  Receipt Date: 20180321
  Transmission Date: 20180508
  Serious: Yes (Hospitalization)
  Sender: FDA-Public Use
  Company Number: IT-ACCORD-051251

PATIENT
  Age: 60 Year
  Sex: Female
  Weight: 40 kg

DRUGS (13)
  1. FLUOROURACIL. [Suspect]
     Active Substance: FLUOROURACIL
     Indication: SQUAMOUS CELL CARCINOMA OF HEAD AND NECK
     Dosage: 5700 MG
     Route: 042
     Dates: start: 20160915
  2. EUTIROX [Concomitant]
     Active Substance: LEVOTHYROXINE SODIUM
     Indication: HYPOTHYROIDISM
     Dosage: 75 MCG
     Route: 048
     Dates: start: 20160825
  3. TRIATEC [Concomitant]
     Active Substance: RAMIPRIL
     Indication: HYPERTENSION
     Dosage: 10 MG, ONCE
     Route: 048
     Dates: start: 20160825, end: 20161017
  4. LANSOPRAZOLE. [Concomitant]
     Active Substance: LANSOPRAZOLE
     Indication: ABDOMINAL PAIN UPPER
     Dates: start: 20160923
  5. ACETYLSALICYLIC ACID [Concomitant]
     Active Substance: ASPIRIN
     Indication: PROPHYLAXIS
     Dosage: 100 MG, ONCE
     Route: 048
     Dates: start: 20160825
  6. PHYTOMENADIONE [Concomitant]
     Active Substance: PHYTONADIONE
     Dates: start: 20160915, end: 20161017
  7. CETUXIMAB. [Suspect]
     Active Substance: CETUXIMAB
     Indication: SQUAMOUS CELL CARCINOMA OF HEAD AND NECK
     Dosage: 250 MG/M^2 CYCLICAL?ALSO RECEIVED 400 MG/M2
     Route: 042
     Dates: start: 20160915
  8. NEBILOX [Concomitant]
     Active Substance: NEBIVOLOL HYDROCHLORIDE
     Indication: HYPERTENSION
     Dosage: 5 MG, ONCE
     Route: 048
     Dates: start: 20160825, end: 20161011
  9. LEXOTAN [Concomitant]
     Active Substance: BROMAZEPAM
     Indication: PROPHYLAXIS
     Dates: start: 20160825, end: 20161017
  10. VIGORSKIN [Concomitant]
     Indication: DRY SKIN PROPHYLAXIS
     Dates: start: 20160915, end: 20161017
  11. OXYCONTIN [Concomitant]
     Active Substance: OXYCODONE HYDROCHLORIDE
     Indication: PAIN
     Dates: start: 20160923
  12. CARBOPLATIN. [Suspect]
     Active Substance: CARBOPLATIN
     Indication: SQUAMOUS CELL CARCINOMA OF HEAD AND NECK
     Dosage: 5 AUC
     Route: 042
     Dates: start: 20160915, end: 20161012
  13. MUSCORIL [Concomitant]
     Active Substance: THIOCOLCHICOSIDE
     Indication: PRODUCT USED FOR UNKNOWN INDICATION
     Dates: start: 20161006, end: 20161102

REACTIONS (7)
  - Neck pain [Not Recovered/Not Resolved]
  - Vomiting [Recovered/Resolved]
  - Decreased appetite [Recovered/Resolved]
  - Stomatitis [Recovered/Resolved]
  - Neutropenia [Recovered/Resolved]
  - Off label use [Unknown]
  - Nausea [Recovered/Resolved]

NARRATIVE: CASE EVENT DATE: 20161005
